FAERS Safety Report 8778915 (Version 2)
Quarter: 2012Q4

REPORT INFORMATION
  Report Type: 
  Country: SE (occurrence: SE)
  Receive Date: 20120912
  Receipt Date: 20121105
  Transmission Date: 20130627
  Serious: Yes (Other)
  Sender: FDA-Public Use
  Company Number: SE-ELI_LILLY_AND_COMPANY-SE201209000553

PATIENT
  Age: 17 Year
  Sex: Male
  Weight: 64 kg

DRUGS (1)
  1. STRATTERA [Suspect]
     Indication: ATTENTION DEFICIT/HYPERACTIVITY DISORDER

REACTIONS (3)
  - Blood pressure orthostatic [Recovered/Resolved]
  - Syncope [Recovered/Resolved]
  - Exercise electrocardiogram abnormal [Unknown]
